FAERS Safety Report 4675228-6 (Version None)
Quarter: 2005Q2

REPORT INFORMATION
  Report Type: 
  Country: None (occurrence: None)
  Receive Date: 20050527
  Receipt Date: 20050427
  Transmission Date: 20051028
  Serious: Yes (Other)
  Sender: FDA-Public Use
  Company Number: PHBS2005IT06220

PATIENT
  Age: 69 Year
  Sex: Female

DRUGS (3)
  1. LETROZOLE [Concomitant]
     Dosage: 2.5 MG/D
     Route: 065
  2. CHEMOTHERAPEUTICS,OTHER [Concomitant]
     Route: 065
     Dates: end: 20040901
  3. ZOMETA [Suspect]
     Indication: BREAST CANCER STAGE IV
     Dosage: 4 MG, QMO
     Route: 042
     Dates: start: 20030501

REACTIONS (2)
  - ASEPTIC NECROSIS BONE [None]
  - SURGERY [None]
